FAERS Safety Report 5597513-6 (Version None)
Quarter: 2008Q1

REPORT INFORMATION
  Report Type: 
  Country: None (occurrence: None)
  Receive Date: 20080116
  Receipt Date: 20080104
  Transmission Date: 20080703
  Serious: Yes (Other)
  Sender: FDA-Public Use
  Company Number: US-1164867

PATIENT
  Sex: Female

DRUGS (1)
  1. ISOPTO HYOSCINE 0.25% SOLUTION [Suspect]
     Dosage: OPHTHALMIC
     Route: 047

REACTIONS (2)
  - CORNEAL DISORDER [None]
  - EYE OEDEMA [None]
